FAERS Safety Report 14655081 (Version 1)
Quarter: 2018Q1

REPORT INFORMATION
  Report Type: Spontaneous
  Country: ES (occurrence: ES)
  Receive Date: 20180319
  Receipt Date: 20180319
  Transmission Date: 20180509
  Serious: Yes (Life-Threatening, Hospitalization)
  Sender: FDA-Public Use
  Company Number: ES-JNJFOC-20180322001

PATIENT
  Age: 37 Year
  Sex: Female

DRUGS (5)
  1. ETOPOSIDE. [Suspect]
     Active Substance: ETOPOSIDE
     Indication: NON-HODGKIN^S LYMPHOMA
     Dosage: IRREGULAR DOSES IN DAILY DOSES. ON DAY 1 AND 3 OF CYCLE TILL COMPLETION OF 6 CYCLES
     Route: 042
     Dates: start: 20150317
  2. PREDNISONE. [Suspect]
     Active Substance: PREDNISONE
     Indication: PRODUCT USED FOR UNKNOWN INDICATION
     Dosage: IRREGULAR DOSES IN DAILY DOSES. ON DAY 1 OF THE CYCLE TILL COMPLETION OF 6 CYCLES
     Route: 042
     Dates: start: 20150317
  3. VINCRISTINE [Suspect]
     Active Substance: VINCRISTINE
     Indication: NON-HODGKIN^S LYMPHOMA
     Dosage: CYCLIC ADMINISTRATION ON DAY 1 TILL COMPLETION OF 6 CYCLES
     Route: 065
     Dates: start: 20150317
  4. CYCLOPHOSPHAMIDE. [Suspect]
     Active Substance: CYCLOPHOSPHAMIDE
     Indication: NON-HODGKIN^S LYMPHOMA
     Dosage: IRREGULAR DOSES IN DAILY DOSES.ON DAY 1 OF THE CYCLE TILL COMPLETION OF 6 CYCLES
     Route: 042
     Dates: start: 20150317
  5. DOXORUBICIN HYDROCHLORIDE. [Suspect]
     Active Substance: DOXORUBICIN HYDROCHLORIDE
     Indication: NON-HODGKIN^S LYMPHOMA
     Dosage: IRREGULAR DOSES IN DAILY DOSES. ON DAY 1 OF THE CYCLE TILL COMPLETION OF 6 CYCLES
     Route: 042
     Dates: start: 20150317

REACTIONS (3)
  - Refractory anaemia with an excess of blasts [Recovered/Resolved]
  - Off label use [Unknown]
  - Product use in unapproved indication [Unknown]

NARRATIVE: CASE EVENT DATE: 20170104
